FAERS Safety Report 23705849 (Version 2)
Quarter: 2024Q2

REPORT INFORMATION
  Report Type: Spontaneous
  Country: IT (occurrence: IT)
  Receive Date: 20240404
  Receipt Date: 20240425
  Transmission Date: 20240716
  Serious: Yes (Other)
  Sender: FDA-Public Use
  Company Number: IT-TEVA-VS-3177968

PATIENT
  Age: 67 Year
  Sex: Female

DRUGS (6)
  1. PREDNISONE [Suspect]
     Active Substance: PREDNISONE
     Indication: Myasthenia gravis
     Route: 065
     Dates: start: 202101
  2. PREDNISONE [Suspect]
     Active Substance: PREDNISONE
     Indication: Myasthenia gravis
     Dosage: HIGH-DOSE PREDNISONE
     Route: 065
  3. PREDNISONE [Suspect]
     Active Substance: PREDNISONE
     Indication: Myasthenia gravis
     Route: 065
     Dates: end: 202207
  4. AZATHIOPRINE [Concomitant]
     Active Substance: AZATHIOPRINE
     Indication: Myasthenia gravis
     Route: 065
     Dates: end: 2021
  5. Immunoglobulin [Concomitant]
     Indication: Myasthenia gravis
     Route: 042
  6. EFGARTIGIMOD ALFA [Suspect]
     Active Substance: EFGARTIGIMOD ALFA
     Indication: Myasthenia gravis
     Dosage: 1H INFUSION
     Route: 050
     Dates: start: 202201

REACTIONS (6)
  - Osteoporosis [Unknown]
  - Hypertension [Unknown]
  - Spinal fracture [Unknown]
  - Cushingoid [Unknown]
  - Diarrhoea [Unknown]
  - Overweight [Recovering/Resolving]

NARRATIVE: CASE EVENT DATE: 20220101
